FAERS Safety Report 23891267 (Version 2)
Quarter: 2024Q2

REPORT INFORMATION
  Report Type: Spontaneous
  Country: US (occurrence: US)
  Receive Date: 20240523
  Receipt Date: 20240610
  Transmission Date: 20240717
  Serious: No
  Sender: FDA-Public Use
  Company Number: US-BIOGEN-2024BI01265791

PATIENT
  Age: 59 Year
  Sex: Female

DRUGS (2)
  1. QALSODY [Suspect]
     Active Substance: TOFERSEN
     Indication: Product used for unknown indication
     Dosage: 1ST LOADING DOSE
     Route: 050
     Dates: start: 20240517
  2. QALSODY [Suspect]
     Active Substance: TOFERSEN
     Dosage: 2ND LOADING DOSE
     Route: 050
     Dates: start: 20240531

REACTIONS (2)
  - Headache [Recovered/Resolved]
  - Back pain [Unknown]

NARRATIVE: CASE EVENT DATE: 20240531
